FAERS Safety Report 25066779 (Version 5)
Quarter: 2025Q2

REPORT INFORMATION
  Report Type: Report from Study
  Country: PL (occurrence: PL)
  Receive Date: 20250312
  Receipt Date: 20250428
  Transmission Date: 20250717
  Serious: Yes (Hospitalization)
  Sender: ROCHE
  Company Number: PL-ROCHE-10000224986

PATIENT
  Age: 52 Year
  Sex: Female

DRUGS (2)
  1. FARICIMAB [Suspect]
     Active Substance: FARICIMAB
     Indication: Neovascular age-related macular degeneration
     Route: 050
  2. FARICIMAB [Suspect]
     Active Substance: FARICIMAB
     Dosage: SHE RECEIVED MOST RECENT DOSE (6 MG) ON 17-JAN-2025 PRIOR TO AE
     Route: 050

REACTIONS (1)
  - Retinal haemorrhage [Recovered/Resolved]

NARRATIVE: CASE EVENT DATE: 20250216
